FAERS Safety Report 11108501 (Version 1)
Quarter: 2015Q2

REPORT INFORMATION
  Report Type: Report from Study
  Country: FR (occurrence: FR)
  Receive Date: 20150513
  Receipt Date: 20150513
  Transmission Date: 20150821
  Serious: Yes (Death, Hospitalization)
  Sender: FDA-Public Use
  Company Number: FR-ACTELION-A-CH2014-110007

PATIENT
  Age: 36 Year
  Sex: Male
  Weight: 67 kg

DRUGS (7)
  1. PRIMPERAN [Concomitant]
     Active Substance: METOCLOPRAMIDE HYDROCHLORIDE
  2. LOXEN [Concomitant]
     Active Substance: NICARDIPINE HYDROCHLORIDE
  3. KARDEGIC [Concomitant]
     Active Substance: ASPIRIN LYSINE
  4. STILNOX [Concomitant]
     Active Substance: ZOLPIDEM TARTRATE
  5. TRACLEER [Suspect]
     Active Substance: BOSENTAN\BOSENTAN MONOHYDRATE
     Indication: SCLERODERMA ASSOCIATED DIGITAL ULCER
     Dosage: 125 MG, BID
     Route: 048
     Dates: start: 20111101
  6. REVATIO [Concomitant]
     Active Substance: SILDENAFIL CITRATE
  7. CETIRIZINE [Concomitant]
     Active Substance: CETIRIZINE HYDROCHLORIDE

REACTIONS (5)
  - Respiratory distress [Fatal]
  - Disease progression [Unknown]
  - Lung infection [Recovered/Resolved with Sequelae]
  - Interstitial lung disease [Unknown]
  - Cachexia [Unknown]

NARRATIVE: CASE EVENT DATE: 20141112
